FAERS Safety Report 17836256 (Version 1)
Quarter: 2020Q2

REPORT INFORMATION
  Report Type: Spontaneous
  Country: CA (occurrence: CA)
  Receive Date: 20200528
  Receipt Date: 20200528
  Transmission Date: 20200714
  Serious: Yes (Other)
  Sender: FDA-Public Use
  Company Number: CA-TEVA-2020-CA-1240012

PATIENT
  Age: 57 Year
  Sex: Male

DRUGS (12)
  1. DEXMEDETOMIDINE HYDROCHLORIDE. [Suspect]
     Active Substance: DEXMEDETOMIDINE HYDROCHLORIDE
     Indication: PERIPHERAL NERVE TRANSPOSITION
     Route: 042
  2. FENTANYL. [Suspect]
     Active Substance: FENTANYL
     Indication: PERIPHERAL NERVE TRANSPOSITION
     Route: 065
  3. FENTANYL. [Suspect]
     Active Substance: FENTANYL
     Indication: PERIPHERAL NERVE TRANSPOSITION
     Route: 065
  4. MIDAZOLAM. [Suspect]
     Active Substance: MIDAZOLAM
     Indication: INDUCTION OF ANAESTHESIA
     Route: 042
  5. SEVOFLURANE. [Suspect]
     Active Substance: SEVOFLURANE
     Indication: PERIPHERAL NERVE TRANSPOSITION
     Route: 065
  6. DEXMEDETOMIDINE HYDROCHLORIDE. [Suspect]
     Active Substance: DEXMEDETOMIDINE HYDROCHLORIDE
     Indication: INDUCTION OF ANAESTHESIA
     Route: 065
  7. PROPOFOL. [Suspect]
     Active Substance: PROPOFOL
     Indication: INDUCTION OF ANAESTHESIA
     Route: 065
  8. MIDAZOLAM. [Suspect]
     Active Substance: MIDAZOLAM
     Indication: PERIPHERAL NERVE TRANSPOSITION
     Route: 065
  9. SEVOFLURANE. [Suspect]
     Active Substance: SEVOFLURANE
     Indication: INDUCTION OF ANAESTHESIA
     Route: 065
  10. PROPOFOL. [Suspect]
     Active Substance: PROPOFOL
     Indication: PERIPHERAL NERVE TRANSPOSITION
     Route: 065
  11. FENTANYL. [Suspect]
     Active Substance: FENTANYL
     Indication: INDUCTION OF ANAESTHESIA
  12. FENTANYL. [Suspect]
     Active Substance: FENTANYL
     Indication: INDUCTION OF ANAESTHESIA

REACTIONS (5)
  - Tachycardia [Unknown]
  - Tachypnoea [Unknown]
  - Dyskinesia [Unknown]
  - Nausea [Unknown]
  - Seizure like phenomena [Unknown]
